FAERS Safety Report 17034635 (Version 2)
Quarter: 2020Q2

REPORT INFORMATION
  Report Type: Report from Study
  Country: US (occurrence: US)
  Receive Date: 20191115
  Receipt Date: 20200618
  Transmission Date: 20200713
  Serious: Yes (Hospitalization)
  Sender: FDA-Public Use
  Company Number: US-ROCHE-2466199

PATIENT
  Age: 74 Year
  Sex: Male
  Weight: 92.5 kg

DRUGS (4)
  1. LOVENOX [Concomitant]
     Active Substance: ENOXAPARIN SODIUM
     Route: 058
  2. ATEZOLIZUMAB. [Suspect]
     Active Substance: ATEZOLIZUMAB
     Indication: RENAL CELL CARCINOMA
     Dosage: ON 31/OCT/2019, DATE OF MOST RECENT DOSE 1200 MG OF STUDY DRUG A (ATEZOLIZUMAB) PRIOR TO AE ONSET OF
     Route: 042
     Dates: start: 20180928
  3. BEVACIZUMAB. [Suspect]
     Active Substance: BEVACIZUMAB
     Indication: RENAL CELL CARCINOMA
     Dosage: ON 31/OCT/2019, DATE OF MOST RECENT DOSE OF STUDY DRUG A (BEVACIZUMAB (1310 MG)) PRIOR TO AE ONSET O
     Route: 065
     Dates: start: 20180928
  4. ASPIRIN [ACETYLSALICYLIC ACID] [Concomitant]
     Active Substance: ASPIRIN

REACTIONS (1)
  - Chest pain [Not Recovered/Not Resolved]

NARRATIVE: CASE EVENT DATE: 20191105
